FAERS Safety Report 5528633-X (Version None)
Quarter: 2007Q4

REPORT INFORMATION
  Report Type: 
  Country: None (occurrence: None)
  Receive Date: 20071119
  Receipt Date: 20070612
  Transmission Date: 20080405
  Serious: Yes (Other)
  Sender: FDA-Public Use
  Company Number: 2007048487

PATIENT
  Age: 6 Year
  Sex: Male
  Weight: 60 kg

DRUGS (5)
  1. CLEOCIN PEDIATRIC (CLINDAMYCIN PALMITATE HYDROCHLORIDE) [Suspect]
     Indication: SINUS DISORDER
     Dosage: (75 MG,3 IN 1 D),ORAL
     Route: 048
     Dates: start: 20070603
  2. XOPENEX [Concomitant]
  3. QVAR [Concomitant]
  4. MOTRIN [Concomitant]
  5. ACETAMINOPHEN [Concomitant]

REACTIONS (6)
  - ABDOMINAL PAIN UPPER [None]
  - CHILLS [None]
  - COUGH [None]
  - DYSPNOEA [None]
  - PYREXIA [None]
  - RASH GENERALISED [None]
